FAERS Safety Report 6139486-3 (Version None)
Quarter: 2009Q1

REPORT INFORMATION
  Report Type: 
  Country: None (occurrence: None)
  Receive Date: 20090326
  Receipt Date: 20080813
  Transmission Date: 20090719
  Serious: Yes (Other)
  Sender: FDA-Public Use
  Company Number: VAL_00187_2009

PATIENT
  Sex: Female

DRUGS (2)
  1. BUMEX [Suspect]
     Indication: DRUG USE FOR UNKNOWN INDICATION
     Dosage: DF INJECTION
     Dates: start: 20080801, end: 20080801
  2. BUMEX [Suspect]
     Indication: DRUG USE FOR UNKNOWN INDICATION
     Dosage: DF ORAL
     Route: 048
     Dates: start: 20080801

REACTIONS (1)
  - BLOOD GLUCOSE INCREASED [None]
